FAERS Safety Report 5001699-1 (Version None)
Quarter: 2006Q2

REPORT INFORMATION
  Report Type: 
  Country: None (occurrence: None)
  Receive Date: 20060515
  Receipt Date: 20060206
  Transmission Date: 20061013
  Serious: Yes (Disabling)
  Sender: FDA-Public Use
  Company Number: 2006GB00228

PATIENT
  Age: 278 Month
  Sex: Female
  Weight: 72 kg

DRUGS (11)
  1. NEXIUM [Suspect]
     Indication: GASTROOESOPHAGEAL REFLUX DISEASE
     Route: 048
     Dates: start: 20030401
  2. NEXIUM [Suspect]
     Indication: HIATUS HERNIA
     Route: 048
     Dates: start: 20030401
  3. NEXIUM [Suspect]
     Route: 048
  4. NEXIUM [Suspect]
     Route: 048
  5. NEXIUM [Suspect]
     Dosage: REDUCED DOSE
     Route: 048
  6. NEXIUM [Suspect]
     Dosage: REDUCED DOSE
     Route: 048
  7. NEXIUM [Suspect]
     Dosage: HIGHER DOSE
     Route: 048
     Dates: end: 20030801
  8. NEXIUM [Suspect]
     Dosage: HIGHER DOSE
     Route: 048
     Dates: end: 20030801
  9. METOCLOPRAMIDE [Concomitant]
     Indication: VOMITING
     Route: 048
     Dates: start: 20030401, end: 20030801
  10. RANITIDINE [Concomitant]
     Indication: ANTACID THERAPY
     Route: 048
     Dates: start: 20010101
  11. GAVISCON [Concomitant]
     Indication: GASTROOESOPHAGEAL REFLUX DISEASE
     Dosage: 100MLS TDS + NOCTE
     Route: 048
     Dates: start: 20030401

REACTIONS (11)
  - AGITATION [None]
  - CONFUSIONAL STATE [None]
  - DEPRESSION [None]
  - EMOTIONAL DISORDER [None]
  - FOOD INTOLERANCE [None]
  - HALLUCINATION [None]
  - MANIA [None]
  - NAUSEA [None]
  - SUICIDAL IDEATION [None]
  - VOMITING [None]
  - WEIGHT DECREASED [None]
